FAERS Safety Report 26145545 (Version 1)
Quarter: 2025Q4

REPORT INFORMATION
  Report Type: Spontaneous
  Country: EU (occurrence: EU)
  Receive Date: 20251211
  Receipt Date: 20251211
  Transmission Date: 20260118
  Serious: Yes (Other)
  Sender: NOVARTIS
  Company Number: EU-SANDOZ-SDZ2025ES072506

PATIENT
  Age: 33 Year
  Sex: Female

DRUGS (4)
  1. IMATINIB [Suspect]
     Active Substance: IMATINIB
     Indication: Chronic myeloid leukaemia
     Dosage: 400 MG, QD
     Route: 065
     Dates: start: 20200923, end: 20210924
  2. IMATINIB [Suspect]
     Active Substance: IMATINIB
     Indication: Chemotherapy
  3. BOSUTINIB [Suspect]
     Active Substance: BOSUTINIB
     Indication: Chemotherapy
     Dosage: 400 MG, QD
     Route: 065
     Dates: start: 20210903, end: 20220303
  4. ASCIMINIB [Concomitant]
     Active Substance: ASCIMINIB
     Indication: Product used for unknown indication
     Dosage: 80 MG, QD, (40 MG, BID )
     Route: 065
     Dates: start: 202204

REACTIONS (2)
  - Drug resistance [Not Recovered/Not Resolved]
  - Gastrointestinal disorder [Unknown]
